FAERS Safety Report 20649364 (Version 1)
Quarter: 2022Q1

REPORT INFORMATION
  Report Type: Other
  Country: US (occurrence: None)
  Receive Date: 20220329
  Receipt Date: 20220329
  Transmission Date: 20220423
  Serious: No
  Sender: FDA-Public Use
  Company Number: US-ROCHE-2924381

PATIENT
  Age: 49 Year
  Sex: Female

DRUGS (1)
  1. OCREVUS [Suspect]
     Active Substance: OCRELIZUMAB
     Indication: Relapsing-remitting multiple sclerosis
     Route: 042
     Dates: start: 20210831

REACTIONS (8)
  - Headache [Recovered/Resolved]
  - Insomnia [Recovered/Resolved]
  - Lip swelling [Recovered/Resolved]
  - Feeding disorder [Recovered/Resolved]
  - Nausea [Not Recovered/Not Resolved]
  - Muscle strain [Not Recovered/Not Resolved]
  - Tendon injury [Not Recovered/Not Resolved]
  - COVID-19 [Recovered/Resolved]

NARRATIVE: CASE EVENT DATE: 20210831
